FAERS Safety Report 7440935-9 (Version None)
Quarter: 2011Q2

REPORT INFORMATION
  Report Type: 
  Country: None (occurrence: None)
  Receive Date: 20110427
  Receipt Date: 20110413
  Transmission Date: 20111010
  Serious: Yes (Other)
  Sender: FDA-Public Use
  Company Number: PHHY2011JP33108

PATIENT
  Sex: Male

DRUGS (18)
  1. SUNITINIB MALATE [Concomitant]
     Indication: METASTATIC RENAL CELL CARCINOMA
     Dosage: 37.5 MG, UNK
     Route: 048
     Dates: start: 20100305, end: 20100906
  2. XYLOCAINE [Concomitant]
     Dates: start: 20100909, end: 20110126
  3. AFINITOR [Suspect]
     Dosage: 10 MG, DAILY
     Route: 048
     Dates: start: 20101101
  4. LOXOPROFEN [Concomitant]
     Dosage: 60 MG, UNK
     Dates: start: 20100909
  5. AFINITOR [Suspect]
     Dosage: 5 MG, DAILY
     Route: 048
     Dates: start: 20100927, end: 20101031
  6. METHYCOBAL [Concomitant]
     Dosage: 500 UG, UNK
     Route: 048
     Dates: start: 20100217
  7. CALCIUM CARBONATE [Concomitant]
     Indication: PROPHYLAXIS
     Dosage: 1500 MG, UNK
     Route: 048
     Dates: start: 20100909
  8. AZ [Concomitant]
     Dates: start: 20100909, end: 20110126
  9. MYSLEE [Concomitant]
     Dosage: 5 MG, UNK
     Route: 048
     Dates: start: 20101125
  10. AFINITOR [Suspect]
     Indication: METASTATIC RENAL CELL CARCINOMA
     Dosage: 10 MG, DAILY
     Route: 048
     Dates: start: 20100909, end: 20100922
  11. INTERFERON ALFA [Concomitant]
     Indication: METASTATIC RENAL CELL CARCINOMA
     Dosage: 5000000 IU, UNK
     Dates: start: 20070702, end: 20070901
  12. LASIX [Concomitant]
     Dosage: 40 MG, UNK
     Route: 048
     Dates: start: 20100909
  13. DEPAS [Concomitant]
     Dosage: 0.5 MG, UNK
     Dates: start: 20100909, end: 20101124
  14. PROTECADIN [Concomitant]
     Indication: PROPHYLAXIS
     Dosage: 20 MG, UNK
     Route: 048
     Dates: start: 20100909
  15. SORAFENIB TOSILATE [Concomitant]
     Indication: METASTATIC RENAL CELL CARCINOMA
     Dosage: 400 MG, UNK
     Route: 048
     Dates: start: 20090416, end: 20100210
  16. BIOFERMIN [Concomitant]
     Indication: PROPHYLAXIS
     Dosage: 3 G, UNK
     Dates: start: 20100909
  17. LOXOPROFEN [Concomitant]
     Dosage: 60 MG, UNK
     Route: 048
  18. SUCRALFATE [Concomitant]
     Dosage: 3 G, UNK
     Dates: start: 20100909

REACTIONS (2)
  - C-REACTIVE PROTEIN INCREASED [None]
  - HAEMOGLOBIN DECREASED [None]
